FAERS Safety Report 23090436 (Version 1)
Quarter: 2023Q4

REPORT INFORMATION
  Report Type: Spontaneous
  Country: CN (occurrence: CN)
  Receive Date: 20231020
  Receipt Date: 20231020
  Transmission Date: 20240110
  Serious: Yes (Other)
  Sender: FDA-Public Use
  Company Number: CN-PFIZER INC-PV202300172128

PATIENT
  Age: 66 Year
  Sex: Male

DRUGS (3)
  1. CYTARABINE [Suspect]
     Active Substance: CYTARABINE
     Indication: Acute myeloid leukaemia
     Dosage: 1.2 G, 2X/DAY
     Route: 041
     Dates: start: 20230912, end: 20230917
  2. CLADRIBINE [Concomitant]
     Active Substance: CLADRIBINE
     Indication: Acute myeloid leukaemia
     Dosage: 8.5 MG, 2X/DAY
     Route: 041
     Dates: start: 20230912, end: 20230917
  3. NIRMATRELVIR\RITONAVIR [Concomitant]
     Active Substance: NIRMATRELVIR\RITONAVIR
     Indication: COVID-19 pneumonia
     Dosage: 3 DF (3 TABLETS), 2X/DAY
     Route: 048
     Dates: start: 20230912, end: 20230918

REACTIONS (8)
  - Pruritus [Unknown]
  - Rash pruritic [Recovering/Resolving]
  - Macule [Unknown]
  - Papule [Unknown]
  - Skin exfoliation [Unknown]
  - Rash erythematous [Unknown]
  - Purpura [Unknown]
  - Drug hypersensitivity [Unknown]

NARRATIVE: CASE EVENT DATE: 20230917
